FAERS Safety Report 9442789 (Version 1)
Quarter: 2013Q3

REPORT INFORMATION
  Report Type: Spontaneous
  Country: US (occurrence: US)
  Receive Date: 20130806
  Receipt Date: 20130806
  Transmission Date: 20140515
  Serious: No
  Sender: FDA-Public Use
  Company Number: US-ABBOTT-13P-163-1039878-00

PATIENT
  Age: 59 Year
  Sex: Female
  Weight: 61.29 kg

DRUGS (3)
  1. DEPAKOTE ER [Suspect]
     Indication: BIPOLAR I DISORDER
     Dosage: 1 500 MG AND 1 250 MG DAILY
     Dates: start: 201209
  2. DEPAKOTE ER [Suspect]
     Indication: BIPOLAR I DISORDER
     Dosage: 1 500 AND 1 250 MG DAILY
     Dates: start: 201209
  3. SEROQUEL [Concomitant]
     Indication: DEPRESSION

REACTIONS (1)
  - Alopecia [Not Recovered/Not Resolved]
